FAERS Safety Report 5074393-9 (Version None)
Quarter: 2006Q3

REPORT INFORMATION
  Report Type: 
  Country: None (occurrence: None)
  Receive Date: 20060803
  Receipt Date: 20060724
  Transmission Date: 20061208
  Serious: Yes (Hospitalization, Other)
  Sender: FDA-Public Use
  Company Number: HQWYE694723NOV05

PATIENT
  Age: 47 Year
  Sex: Male

DRUGS (16)
  1. RAPAMUNE [Suspect]
     Indication: PROPHYLAXIS AGAINST TRANSPLANT REJECTION
     Dosage: 5 MG 1X PER 1 DAY, ORAL
     Route: 048
     Dates: start: 20051116, end: 20051121
  2. RAPAMUNE [Suspect]
     Indication: PROPHYLAXIS AGAINST TRANSPLANT REJECTION
     Dosage: 5 MG 1X PER 1 DAY, ORAL
     Route: 048
     Dates: start: 20051205
  3. PENTOXIFYLLINE [Concomitant]
  4. NADROPARIN CALCIUM (NADROPARIN CALCIUM) [Concomitant]
  5. CELLCEPT [Concomitant]
  6. OMEPRAZOLE [Concomitant]
  7. NYSTATIN [Concomitant]
  8. BACTRIM [Concomitant]
  9. MENTOPIN ACETYLCYSTEIN (ACETYLCYSTEINE) [Concomitant]
  10. ACYCLOVIR [Concomitant]
  11. FUROSEMIDE [Concomitant]
  12. ACETAMINOPHEN [Concomitant]
  13. TRAMADOL HCL [Concomitant]
  14. CLOTRIMAZOLE [Concomitant]
  15. AMOXICILLIN [Concomitant]
  16. SORBITOL (SORBITOL) [Concomitant]

REACTIONS (5)
  - BLOOD ALKALINE PHOSPHATASE INCREASED [None]
  - BLOOD CHOLESTEROL INCREASED [None]
  - BLOOD GLUCOSE INCREASED [None]
  - BLOOD LACTATE DEHYDROGENASE INCREASED [None]
  - COMPLICATIONS OF TRANSPLANTED KIDNEY [None]
